FAERS Safety Report 9604417 (Version 3)
Quarter: 2014Q2

REPORT INFORMATION
  Report Type: Spontaneous
  Country: FR (occurrence: FR)
  Receive Date: 20131008
  Receipt Date: 20140514
  Transmission Date: 20141212
  Serious: Yes (Hospitalization, Other)
  Sender: FDA-Public Use
  Company Number: FR-009507513-1309FRA013580

PATIENT
  Age: 59 Year
  Sex: Female

DRUGS (16)
  1. NORSET [Suspect]
     Indication: PRODUCT USED FOR UNKNOWN INDICATION
     Dosage: 1 DF, QD
     Route: 048
     Dates: end: 20130909
  2. ZELITREX [Suspect]
     Indication: ANTIVIRAL PROPHYLAXIS
     Dosage: 1 DF, QD
     Route: 048
     Dates: start: 201306, end: 20130909
  3. VESANOID [Suspect]
     Indication: PRODUCT USED FOR UNKNOWN INDICATION
     Dosage: 70 MG, QD
     Route: 048
     Dates: start: 20130423, end: 20130502
  4. VESANOID [Suspect]
     Dosage: UNK
     Route: 048
     Dates: start: 20130508, end: 20130515
  5. VESANOID [Suspect]
     Dosage: UNK
     Route: 048
     Dates: start: 20130524, end: 20130529
  6. VESANOID [Suspect]
     Dosage: 32.5 MG, QD
     Route: 048
     Dates: start: 20130626, end: 20130709
  7. VESANOID [Suspect]
     Dosage: 32.5 MG, QD
     Route: 048
     Dates: start: 20130725, end: 20130807
  8. VESANOID [Suspect]
     Dosage: UNK
     Route: 048
     Dates: start: 20130828, end: 20130909
  9. VESANOID [Suspect]
     Dosage: UNK
     Dates: start: 20131202
  10. TRISENOX [Suspect]
     Dosage: UNK
     Route: 042
     Dates: start: 20130626, end: 20130905
  11. ZYVOXID [Concomitant]
     Indication: PRODUCT USED FOR UNKNOWN INDICATION
     Dosage: 1 DF, BID
     Route: 048
     Dates: start: 20130827, end: 20130904
  12. PROZAC [Concomitant]
     Indication: PRODUCT USED FOR UNKNOWN INDICATION
     Dosage: 40 MG, QD
     Route: 048
     Dates: end: 20130909
  13. INEXIUM [Concomitant]
     Dosage: UNK
     Route: 048
  14. CARDENSIEL [Concomitant]
     Dosage: UNK
     Route: 048
  15. SERESTA [Concomitant]
     Dosage: 1 DF, TID
     Route: 048
     Dates: start: 201307
  16. IMOVANE [Concomitant]
     Dosage: 1 DF, QD
     Route: 048
     Dates: start: 201306

REACTIONS (1)
  - Renal failure acute [Recovered/Resolved with Sequelae]
